FAERS Safety Report 24620433 (Version 1)
Quarter: 2024Q4

REPORT INFORMATION
  Report Type: Spontaneous
  Country: US (occurrence: US)
  Receive Date: 20241114
  Receipt Date: 20241114
  Transmission Date: 20250114
  Serious: No
  Sender: BLUEPRINT MEDICINES
  Company Number: US-Blueprint Medicines Corporation-SP-US-2024-002320

PATIENT
  Sex: Female

DRUGS (20)
  1. AYVAKIT [Suspect]
     Active Substance: AVAPRITINIB
     Indication: Indolent systemic mastocytosis
     Route: 065
     Dates: start: 20230914
  2. AYVAKIT [Suspect]
     Active Substance: AVAPRITINIB
     Route: 065
  3. ASPIRIN [Concomitant]
     Active Substance: ASPIRIN
     Indication: Headache
     Route: 065
  4. ASPIRIN [Concomitant]
     Active Substance: ASPIRIN
     Indication: Hypersensitivity
  5. RUPATADINE [Concomitant]
     Active Substance: RUPATADINE
     Indication: Hypersensitivity
     Route: 065
  6. KETOTIFIN [Concomitant]
     Indication: Hypersensitivity
     Route: 065
  7. CROMOLYN SODIUM [Concomitant]
     Active Substance: CROMOLYN SODIUM
     Indication: Gastrointestinal disorder
     Route: 065
  8. POTASSIUM CHLORIDE [Concomitant]
     Active Substance: POTASSIUM CHLORIDE
     Indication: Hypokalaemia
     Route: 065
  9. AMILORIDE [Concomitant]
     Active Substance: AMILORIDE
     Indication: Hypokalaemia
     Route: 065
  10. BUMETANIDE [Concomitant]
     Active Substance: BUMETANIDE
     Indication: Diuretic therapy
     Route: 065
  11. ZYFLO CR [Concomitant]
     Active Substance: ZILEUTON
     Indication: Asthma
     Route: 065
  12. VITAMIN D3 [Concomitant]
     Active Substance: CHOLECALCIFEROL
     Indication: Vitamin D deficiency
     Route: 065
  13. FISH OIL\OMEGA-3 FATTY ACIDS [Concomitant]
     Active Substance: FISH OIL\OMEGA-3 FATTY ACIDS
     Indication: Inflammation
     Route: 065
  14. GINGER [Concomitant]
     Active Substance: GINGER
     Indication: Gastrointestinal disorder
     Route: 065
  15. PSYLLIUM FIBER [Concomitant]
     Active Substance: PSYLLIUM HUSK
     Indication: Constipation
     Route: 065
  16. BENADRYL [Concomitant]
     Active Substance: DIPHENHYDRAMINE HYDROCHLORIDE
     Indication: Hypersensitivity
     Dosage: 25-50 MG
     Route: 065
  17. NASAL CROM - NASAL SPRAY [Concomitant]
     Indication: Nasal congestion
     Route: 065
  18. REFRESH PLUS [Concomitant]
     Active Substance: CARBOXYMETHYLCELLULOSE SODIUM
     Indication: Eye disorder
     Route: 065
  19. XOPENEX HFA [Concomitant]
     Active Substance: LEVALBUTEROL TARTRATE
     Indication: Asthma
  20. EPINEPHRINE [Concomitant]
     Active Substance: EPINEPHRINE
     Indication: Anaphylactic reaction

REACTIONS (31)
  - Dry mouth [Unknown]
  - Dry eye [Unknown]
  - Alopecia [Unknown]
  - Muscle spasms [Recovered/Resolved]
  - Flushing [Unknown]
  - Swelling [Unknown]
  - Nausea [Recovered/Resolved]
  - Headache [Unknown]
  - Dizziness [Unknown]
  - Fatigue [Recovered/Resolved]
  - Dyspnoea [Unknown]
  - Pruritus [Unknown]
  - Brain fog [Unknown]
  - Myalgia [Unknown]
  - Abdominal pain upper [Recovered/Resolved]
  - Constipation [Recovered/Resolved]
  - Diarrhoea [Unknown]
  - Body temperature decreased [Unknown]
  - Hypotension [Unknown]
  - Abdominal distension [Recovered/Resolved]
  - Influenza like illness [Recovered/Resolved]
  - Flatulence [Recovered/Resolved]
  - Bone pain [Not Recovered/Not Resolved]
  - Neck pain [Unknown]
  - Pain in extremity [Unknown]
  - Limb discomfort [Recovering/Resolving]
  - Gait disturbance [Recovering/Resolving]
  - Intervertebral disc degeneration [Unknown]
  - Intervertebral disc space narrowing [Unknown]
  - Joint ankylosis [Unknown]
  - Off label use [Unknown]

NARRATIVE: CASE EVENT DATE: 20231101
